FAERS Safety Report 4803608-4 (Version None)
Quarter: 2005Q4

REPORT INFORMATION
  Report Type: 
  Country: None (occurrence: None)
  Receive Date: 20051013
  Receipt Date: 20050919
  Transmission Date: 20060501
  Serious: Yes (Death)
  Sender: FDA-Public Use
  Company Number: IMP_0892_2005

PATIENT
  Age: 14 Year

DRUGS (1)
  1. OXYCODONE [Suspect]

REACTIONS (4)
  - CARDIAC ARREST [None]
  - DRUG ABUSER [None]
  - OVERDOSE [None]
  - RESPIRATORY ARREST [None]
